FAERS Safety Report 8823521 (Version 2)
Quarter: 2012Q4

REPORT INFORMATION
  Report Type: 
  Country: US (occurrence: US)
  Receive Date: 20121003
  Receipt Date: 20121217
  Transmission Date: 20130627
  Serious: No
  Sender: FDA-Public Use
  Company Number: US-VERTEX PHARMACEUTICAL INC.-2012-021474

PATIENT
  Age: 62 None
  Sex: Male

DRUGS (4)
  1. VX-950 (TELAPREVIR) [Suspect]
     Indication: HEPATITIS C
     Dosage: 750 mg, tid
     Route: 048
     Dates: start: 2012, end: 201210
  2. PEGASYS [Suspect]
     Indication: HEPATITIS C
     Dosage: 180 ?g, qw
     Route: 058
     Dates: start: 2012
  3. RIBAPAK [Suspect]
     Indication: HEPATITIS C
     Dosage: 600 mf AM, 400 mg PM, qd
     Route: 048
     Dates: start: 2012
  4. PROCRIT                            /00928302/ [Concomitant]
     Indication: ANAEMIA
     Dosage: 40000 ut, 5 days
     Dates: start: 2012

REACTIONS (4)
  - Haemorrhoids [Unknown]
  - Proctalgia [Unknown]
  - Haemorrhoidal haemorrhage [Unknown]
  - Dysgeusia [Unknown]
